FAERS Safety Report 4881304-5 (Version None)
Quarter: 2006Q1

REPORT INFORMATION
  Report Type: 
  Country: None (occurrence: None)
  Receive Date: 20060111
  Receipt Date: 20060111
  Transmission Date: 20060701
  Serious: No
  Sender: FDA-Public Use
  Company Number: None

PATIENT
  Age: 50 Year
  Sex: Female

DRUGS (1)
  1. HYDROCODONE WITH APAP [Suspect]
     Indication: SHOULDER PAIN
     Dosage: 180 X 2

REACTIONS (3)
  - IMPAIRED HEALING [None]
  - ULCERATIVE KERATITIS [None]
  - VISION BLURRED [None]
